FAERS Safety Report 25691011 (Version 1)
Quarter: 2025Q3

REPORT INFORMATION
  Report Type: Spontaneous
  Country: US (occurrence: US)
  Receive Date: 20250818
  Receipt Date: 20250818
  Transmission Date: 20251020
  Serious: No
  Sender: RECKITT BENCKISER
  Company Number: US-PROD-AS2-212756134-20-25-USA-RB-0000403

PATIENT
  Age: 70 Year
  Sex: Male
  Weight: 81.647 kg

DRUGS (1)
  1. MUCINEX MAXIMUM STRENGTH [Suspect]
     Active Substance: GUAIFENESIN
     Indication: Cough
     Route: 065
     Dates: start: 20250109

REACTIONS (1)
  - Overdose [Not Recovered/Not Resolved]
